FAERS Safety Report 7816886-4 (Version None)
Quarter: 2011Q4

REPORT INFORMATION
  Report Type: 
  Country: None (occurrence: None)
  Receive Date: 20111013
  Receipt Date: 20111003
  Transmission Date: 20120403
  Serious: Yes (Other)
  Sender: FDA-Public Use
  Company Number: 2011SP046786

PATIENT
  Sex: Female

DRUGS (2)
  1. RIBAVIRIN [Suspect]
     Indication: HEPATITIS C
     Dates: start: 20111003
  2. RIBAVIRIN [Suspect]
     Indication: HEPATITIS C
     Dates: start: 20070501, end: 20070601

REACTIONS (3)
  - LOSS OF CONSCIOUSNESS [None]
  - ANAEMIA [None]
  - HEADACHE [None]
